FAERS Safety Report 17535311 (Version 2)
Quarter: 2020Q1

REPORT INFORMATION
  Report Type: Spontaneous
  Country: PL (occurrence: PL)
  Receive Date: 20200313
  Receipt Date: 20200316
  Transmission Date: 20200409
  Serious: Yes (Hospitalization, Other)
  Sender: FDA-Public Use
  Company Number: PL-ROCHE-2563223

PATIENT
  Age: 48 Year
  Sex: Male

DRUGS (4)
  1. TOCILIZUMAB. [Suspect]
     Active Substance: TOCILIZUMAB
     Indication: RHEUMATOID ARTHRITIS
     Route: 058
     Dates: start: 2013
  2. METHOTREXATE. [Concomitant]
     Active Substance: METHOTREXATE
  3. ARAVA [Concomitant]
     Active Substance: LEFLUNOMIDE
     Dosage: 3 MONTHS - INEFFECTIVE
     Route: 065
  4. METYPRED [METHYLPREDNISOLONE] [Concomitant]
     Active Substance: METHYLPREDNISOLONE

REACTIONS (4)
  - Impaired healing [Recovered/Resolved]
  - Wound secretion [Recovered/Resolved]
  - Nasopharyngitis [Unknown]
  - Tibia fracture [Unknown]

NARRATIVE: CASE EVENT DATE: 201404
